FAERS Safety Report 12589709 (Version 1)
Quarter: 2016Q3

REPORT INFORMATION
  Report Type: Spontaneous
  Country: US (occurrence: US)
  Receive Date: 20160725
  Receipt Date: 20160725
  Transmission Date: 20161109
  Serious: No
  Sender: FDA-Public Use
  Company Number: US-PFIZER INC-2016346706

PATIENT
  Age: 61 Year
  Sex: Male
  Weight: 124.7 kg

DRUGS (8)
  1. FARXIGA [Concomitant]
     Active Substance: DAPAGLIFLOZIN PROPANEDIOL
     Indication: DIABETES MELLITUS
     Dosage: 10 MG, 1X/DAY
     Dates: start: 2014
  2. MAGNESIUM CHLORIDE. [Concomitant]
     Active Substance: MAGNESIUM CHLORIDE
     Dosage: UNK, 2X/DAY
     Dates: start: 2011
  3. TORSEMIDE. [Concomitant]
     Active Substance: TORSEMIDE
     Indication: CARDIAC FAILURE CONGESTIVE
     Dosage: 100 MG, 1X/DAY
     Dates: start: 2011
  4. TRAZODONE [Concomitant]
     Active Substance: TRAZODONE HYDROCHLORIDE
     Indication: SLEEP DISORDER
     Dosage: 150 MG, 1X/DAY
  5. LYRICA [Suspect]
     Active Substance: PREGABALIN
     Indication: NEURALGIA
     Dosage: 175 MG, 2X/DAY
     Route: 048
     Dates: start: 20160620
  6. POTASSIUM CHLORIDE. [Concomitant]
     Active Substance: POTASSIUM CHLORIDE
     Dosage: 20 TBCR, TAKES 8 A DAY
  7. MELOXICAM. [Concomitant]
     Active Substance: MELOXICAM
     Indication: BONE MARROW TRANSPLANT
     Dosage: 15 MG, 1X/DAY
     Dates: start: 2011
  8. METANX [Concomitant]
     Active Substance: LEVOMEFOLATE CALCIUM\METHYLCOBALAMIN\PYRIDOXAL PHOSPHATE ANHYDROUS
     Indication: COGNITIVE DISORDER
     Dosage: 35 MG, 2X/DAY

REACTIONS (8)
  - Visual impairment [Unknown]
  - Irritability [Not Recovered/Not Resolved]
  - Impulsive behaviour [Not Recovered/Not Resolved]
  - Euphoric mood [Unknown]
  - Aggression [Not Recovered/Not Resolved]
  - Vision blurred [Not Recovered/Not Resolved]
  - Dizziness [Unknown]
  - Blister [Not Recovered/Not Resolved]
